FAERS Safety Report 19373753 (Version 2)
Quarter: 2021Q2

REPORT INFORMATION
  Report Type: Spontaneous
  Country: IT (occurrence: IT)
  Receive Date: 20210603
  Receipt Date: 20210608
  Transmission Date: 20210717
  Serious: Yes (Other)
  Sender: FDA-Public Use
  Company Number: IT-GILEAD-2021-0534069

PATIENT
  Age: 77 Year
  Sex: Male

DRUGS (2)
  1. VEKLURY [Suspect]
     Active Substance: REMDESIVIR
     Indication: PRODUCT USED FOR UNKNOWN INDICATION
     Dosage: 300 MG CYCLICAL
     Route: 065
     Dates: start: 20210311, end: 20210311
  2. VEKLURY [Suspect]
     Active Substance: REMDESIVIR
     Dosage: 100 UNK
     Route: 065
     Dates: start: 20210312, end: 20210312

REACTIONS (1)
  - Electrocardiogram QT prolonged [Recovered/Resolved]

NARRATIVE: CASE EVENT DATE: 20210312
